FAERS Safety Report 6690177-X (Version None)
Quarter: 2010Q2

REPORT INFORMATION
  Report Type: 
  Country: None (occurrence: None)
  Receive Date: 20100421
  Receipt Date: 20100411
  Transmission Date: 20101027
  Serious: Yes (Hospitalization, Other)
  Sender: FDA-Public Use
  Company Number: US-AMGEN-QUU404797

PATIENT
  Sex: Female

DRUGS (1)
  1. ENBREL [Suspect]
     Indication: ANKYLOSING SPONDYLITIS
     Route: 058
     Dates: start: 20060901

REACTIONS (4)
  - ACUTE FATTY LIVER OF PREGNANCY [None]
  - BACK PAIN [None]
  - HELLP SYNDROME [None]
  - PREMATURE LABOUR [None]
